FAERS Safety Report 16190753 (Version 1)
Quarter: 2019Q2

REPORT INFORMATION
  Report Type: Spontaneous
  Country: US (occurrence: US)
  Receive Date: 20190412
  Receipt Date: 20190412
  Transmission Date: 20190711
  Serious: No
  Sender: FDA-Public Use
  Company Number: US-TEVA-2019-US-1033901

PATIENT
  Sex: Male

DRUGS (1)
  1. DIAZEPAM TABLETS TEVA [Suspect]
     Active Substance: DIAZEPAM
     Indication: ANXIETY
     Route: 065
     Dates: start: 20190328

REACTIONS (2)
  - Drug ineffective [Unknown]
  - Agitation [Unknown]

NARRATIVE: CASE EVENT DATE: 20190328
